FAERS Safety Report 4791307-7 (Version None)
Quarter: 2005Q4

REPORT INFORMATION
  Report Type: 
  Country: None (occurrence: None)
  Receive Date: 20051007
  Receipt Date: 20050926
  Transmission Date: 20060501
  Serious: Yes (Hospitalization)
  Sender: FDA-Public Use
  Company Number: 200513255EU

PATIENT
  Age: 58 Year

DRUGS (2)
  1. NICORETTE [Suspect]
     Indication: DRUG USE FOR UNKNOWN INDICATION
     Route: 002
     Dates: start: 20050510, end: 20050601
  2. NICOTROL [Suspect]

REACTIONS (6)
  - CARDIOVASCULAR DISORDER [None]
  - DIFFICULTY IN WALKING [None]
  - HYPOAESTHESIA [None]
  - INTENTIONAL DRUG MISUSE [None]
  - PARALYSIS [None]
  - TONGUE PARALYSIS [None]
